FAERS Safety Report 6347268-2 (Version None)
Quarter: 2009Q3

REPORT INFORMATION
  Report Type: 
  Country: None (occurrence: None)
  Receive Date: 20090910
  Receipt Date: 20090907
  Transmission Date: 20100115
  Serious: Yes (Hospitalization)
  Sender: FDA-Public Use
  Company Number: DE-BRISTOL-MYERS SQUIBB COMPANY-14721484

PATIENT
  Age: 53 Year
  Sex: Female

DRUGS (4)
  1. ORENCIA [Suspect]
     Indication: RHEUMATOID ARTHRITIS
     Route: 042
     Dates: start: 20070801
  2. ARAVA [Suspect]
     Indication: RHEUMATOID ARTHRITIS
     Dosage: 1 DOSAGE FORM = 20/10 MG (UNTIL JAN2008, 20MG, PO. SINCE JAN2008 10 MG, PO).
     Route: 042
     Dates: start: 20000701, end: 20090701
  3. PANKREATAN [Concomitant]
     Indication: PANCREATIC INSUFFICIENCY
     Route: 048
     Dates: start: 20060401
  4. ATACAND [Concomitant]

REACTIONS (3)
  - BLOOD PRESSURE INCREASED [None]
  - HEPATIC ENZYME INCREASED [None]
  - SYNCOPE [None]
